FAERS Safety Report 11995576 (Version 1)
Quarter: 2016Q1

REPORT INFORMATION
  Report Type: Spontaneous
  Country: BR (occurrence: BR)
  Receive Date: 20160203
  Receipt Date: 20160203
  Transmission Date: 20160526
  Serious: Yes (Hospitalization, Other)
  Sender: FDA-Public Use
  Company Number: BR-NORTHSTAR HEALTHCARE HOLDINGS-BR-2016NSR000157

PATIENT

DRUGS (1)
  1. ALLOPURINOL. [Suspect]
     Active Substance: ALLOPURINOL
     Indication: ACCIDENTAL EXPOSURE TO PRODUCT
     Dosage: UNK

REACTIONS (8)
  - Rash pustular [Unknown]
  - Renal function test abnormal [Unknown]
  - Rash maculo-papular [Unknown]
  - Eosinophilia [Unknown]
  - Drug reaction with eosinophilia and systemic symptoms [Unknown]
  - Pyrexia [Unknown]
  - Hepatic enzyme increased [Unknown]
  - Pancreatic enzymes increased [Unknown]
